FAERS Safety Report 23940230 (Version 2)
Quarter: 2024Q3

REPORT INFORMATION
  Report Type: Spontaneous
  Country: FR (occurrence: FR)
  Receive Date: 20240605
  Receipt Date: 20240714
  Transmission Date: 20241017
  Serious: Yes (Other)
  Sender: NOVARTIS
  Company Number: FR-ITM MEDICAL ISOTOPES GMBH-ITMFR2024000205

PATIENT
  Age: 77 Year
  Sex: Male

DRUGS (12)
  1. LUTETIUM LU-177 VIPIVOTIDE TETRAXETAN [Suspect]
     Active Substance: LUTETIUM LU-177 VIPIVOTIDE TETRAXETAN
     Indication: Prostate cancer metastatic
     Dosage: CYCLE #1,  7.4 GBQ LUPSMA
     Route: 065
     Dates: start: 20220720
  2. LUTETIUM LU-177 VIPIVOTIDE TETRAXETAN [Suspect]
     Active Substance: LUTETIUM LU-177 VIPIVOTIDE TETRAXETAN
     Dosage: CYCLE #2, 7.4 GBQ LUPSMA
     Route: 065
  3. LUTETIUM LU-177 VIPIVOTIDE TETRAXETAN [Suspect]
     Active Substance: LUTETIUM LU-177 VIPIVOTIDE TETRAXETAN
     Dosage: CYCLE #3, 7.4 GBQ LUPSMA
     Route: 065
  4. LUTETIUM LU-177 VIPIVOTIDE TETRAXETAN [Suspect]
     Active Substance: LUTETIUM LU-177 VIPIVOTIDE TETRAXETAN
     Dosage: CYCLE #4, 7.4 GBQ LUPSMA
     Route: 065
  5. LUTETIUM LU-177 VIPIVOTIDE TETRAXETAN [Suspect]
     Active Substance: LUTETIUM LU-177 VIPIVOTIDE TETRAXETAN
     Dosage: CYCLE #5, 7.4 GBQ LUPSMA
     Route: 065
  6. LUTETIUM LU-177 VIPIVOTIDE TETRAXETAN [Suspect]
     Active Substance: LUTETIUM LU-177 VIPIVOTIDE TETRAXETAN
     Dosage: CYCLE #6, 7.4 GBQ LUPSMA
     Route: 065
     Dates: start: 20230309
  7. LUTETIUM CHLORIDE LU-177 [Suspect]
     Active Substance: LUTETIUM CHLORIDE LU-177
     Indication: Radioisotope therapy
     Dosage: CYCLE #1, 7.4 GBQ LUPSMA
     Route: 065
     Dates: start: 20220720
  8. LUTETIUM CHLORIDE LU-177 [Suspect]
     Active Substance: LUTETIUM CHLORIDE LU-177
     Dosage: CYCLE #2, 7.4 GBQ LUPSMA
     Route: 065
  9. LUTETIUM CHLORIDE LU-177 [Suspect]
     Active Substance: LUTETIUM CHLORIDE LU-177
     Dosage: CYCLE #3, 7.4 GBQ LUPSMA
     Route: 065
  10. LUTETIUM CHLORIDE LU-177 [Suspect]
     Active Substance: LUTETIUM CHLORIDE LU-177
     Dosage: CYCLE #4, 7.4 GBQ LUPSMA
     Route: 065
  11. LUTETIUM CHLORIDE LU-177 [Suspect]
     Active Substance: LUTETIUM CHLORIDE LU-177
     Dosage: CYCLE #5, 7.4 GBQ LUPSMA
     Route: 065
  12. LUTETIUM CHLORIDE LU-177 [Suspect]
     Active Substance: LUTETIUM CHLORIDE LU-177
     Dosage: CYCLE #6, 7.4 GBQ LUPSMA
     Route: 065
     Dates: start: 20230309

REACTIONS (1)
  - Myelodysplastic syndrome [Unknown]

NARRATIVE: CASE EVENT DATE: 20230701
